FAERS Safety Report 4902361-3 (Version None)
Quarter: 2006Q1

REPORT INFORMATION
  Report Type: 
  Country: None (occurrence: None)
  Receive Date: 20060202
  Receipt Date: 20060120
  Transmission Date: 20060701
  Serious: Yes (Hospitalization)
  Sender: FDA-Public Use
  Company Number: 220338

PATIENT
  Age: 65 Year
  Sex: Male
  Weight: 62 kg

DRUGS (12)
  1. RITUXAN [Suspect]
     Indication: NON-HODGKIN'S LYMPHOMA
     Dosage: 650 MG, INTRAVENOUS
     Route: 042
     Dates: start: 20050506, end: 20050804
  2. THERARUBICIN (PIRARUBICIN) [Concomitant]
  3. ENDOXAN (CYCLOPHOSPHAMIDE) [Concomitant]
  4. ONCOVIN [Concomitant]
  5. METHOTREXATE [Concomitant]
  6. FAMOTIDINE [Concomitant]
  7. TEGRETOL [Concomitant]
  8. VERAPAMIL [Concomitant]
  9. ISONIAZID [Concomitant]
  10. DIGOXIN [Concomitant]
  11. BASEN (VOGLIBOSE) [Concomitant]
  12. PYRIDOXAL PHOSPHATE (PYRIDOXAL PHOSPHATE) [Concomitant]

REACTIONS (6)
  - ALANINE AMINOTRANSFERASE INCREASED [None]
  - ASPARTATE AMINOTRANSFERASE INCREASED [None]
  - GANGRENE [None]
  - HAEMOGLOBIN DECREASED [None]
  - PLATELET COUNT DECREASED [None]
  - WHITE BLOOD CELL COUNT DECREASED [None]
